FAERS Safety Report 13309082 (Version 1)
Quarter: 2017Q1

REPORT INFORMATION
  Report Type: Spontaneous
  Country: US (occurrence: US)
  Receive Date: 20170309
  Receipt Date: 20170309
  Transmission Date: 20170428
  Serious: Yes (Other)
  Sender: FDA-Public Use
  Company Number: None

PATIENT
  Age: 61 Year
  Sex: Female
  Weight: 96.75 kg

DRUGS (17)
  1. LEVOTHYROXINE. [Concomitant]
     Active Substance: LEVOTHYROXINE
  2. MEDROXYPR [Concomitant]
  3. CHLORHEXIDINE, AS STATED BY DR. [Suspect]
     Active Substance: CHLORHEXIDINE
     Indication: PREOPERATIVE CARE
     Dosage: OTHER FREQUENCY:ONCE PRIOR TO SURG;?
     Route: 061
     Dates: start: 20170302, end: 20170302
  4. BIOFLAVINOID [Concomitant]
  5. GLUCOSAMINE [Concomitant]
     Active Substance: GLUCOSAMINE
  6. LYSINE [Concomitant]
     Active Substance: LYSINE
  7. CLEAR SINUS + EAR [Concomitant]
  8. ENJUVIA [Concomitant]
     Active Substance: ESTROGENS, CONJUGATED SYNTHETIC B
  9. BILBERRY [Concomitant]
     Active Substance: BILBERRY
  10. COQ10 [Concomitant]
     Active Substance: UBIDECARENONE
  11. CLEAR LUNGS [Concomitant]
  12. CALCIUM [Concomitant]
     Active Substance: CALCIUM
  13. MULTIVITAMIN [Concomitant]
     Active Substance: VITAMINS
  14. LIPOFLAVINOID PLUS [Concomitant]
  15. VITAMIN B COMPLEX [Concomitant]
     Active Substance: CYANOCOBALAMIN\DEXPANTHENOL\NIACINAMIDE\PYRIDOXINE HYDROCHLORIDE\RIBOFLAVIN 5^-PHOSPHATE SODIUM\THIAMINE HYDROCHLORIDE\VITAMIN B COMPLEX
  16. LUTEIN [Concomitant]
     Active Substance: LUTEIN
  17. DIGESTIVE ADVANTAGE IBS + LACTOSE INTOLERANCE [Concomitant]

REACTIONS (3)
  - Pruritus [None]
  - Urticaria [None]
  - Rash generalised [None]

NARRATIVE: CASE EVENT DATE: 20170302
